FAERS Safety Report 15896724 (Version 1)
Quarter: 2019Q1

REPORT INFORMATION
  Report Type: Report from Study
  Country: US (occurrence: US)
  Receive Date: 20190131
  Receipt Date: 20190131
  Transmission Date: 20190417
  Serious: Yes (Other)
  Sender: FDA-Public Use
  Company Number: US-MYLANLABS-2018M1078486

PATIENT
  Age: 60 Year
  Sex: Female
  Weight: 70.3 kg

DRUGS (2)
  1. GLATIRAMER ACETATE INJECTION [Suspect]
     Active Substance: GLATIRAMER ACETATE
     Indication: RELAPSING-REMITTING MULTIPLE SCLEROSIS
     Dosage: 40 MG, 3XW
     Route: 058
     Dates: start: 201809
  2. GLATIRAMER ACETATE INJECTION [Suspect]
     Active Substance: GLATIRAMER ACETATE
     Dosage: 40 UNK
     Route: 058

REACTIONS (9)
  - Thrombosis [Recovered/Resolved]
  - Injection site pain [Recovered/Resolved]
  - Arrhythmia [Recovered/Resolved]
  - Condition aggravated [Recovered/Resolved]
  - Product dose omission [Not Recovered/Not Resolved]
  - Mass [Recovered/Resolved]
  - Insomnia [Recovered/Resolved]
  - Contusion [Recovered/Resolved]
  - Injection site erythema [Recovered/Resolved]

NARRATIVE: CASE EVENT DATE: 201809
